FAERS Safety Report 6042844-9 (Version None)
Quarter: 2009Q1

REPORT INFORMATION
  Report Type: 
  Country: None (occurrence: None)
  Receive Date: 20090119
  Receipt Date: 20090114
  Transmission Date: 20090719
  Serious: Yes (Hospitalization)
  Sender: FDA-Public Use
  Company Number: US-ABBOTT-09P-163-0497880-00

PATIENT
  Sex: Female
  Weight: 59.02 kg

DRUGS (5)
  1. HUMIRA [Suspect]
     Indication: RHEUMATOID ARTHRITIS
     Route: 058
     Dates: start: 20080101, end: 20080601
  2. HUMIRA [Suspect]
     Route: 058
     Dates: start: 20090106
  3. PREDNISONE [Concomitant]
     Indication: RHEUMATOID ARTHRITIS
  4. UNKNOWN ALLERGY MEDICINE OTC [Concomitant]
     Indication: HYPERSENSITIVITY
  5. PERCOCET [Concomitant]
     Indication: PAIN
     Dosage: ON DAYS OF PHYSICAL THERAPY

REACTIONS (7)
  - ENDOTRACHEAL INTUBATION [None]
  - FEMUR FRACTURE [None]
  - HEAD INJURY [None]
  - MEMORY IMPAIRMENT [None]
  - ROAD TRAFFIC ACCIDENT [None]
  - SCRATCH [None]
  - UPPER LIMB FRACTURE [None]
